FAERS Safety Report 4518891-2 (Version None)
Quarter: 2004Q4

REPORT INFORMATION
  Report Type: 
  Country: None (occurrence: None)
  Receive Date: 20041201
  Receipt Date: 20041119
  Transmission Date: 20050328
  Serious: Yes (Other)
  Sender: FDA-Public Use
  Company Number: HQWYE017325OCT04

PATIENT
  Age: 15 Month
  Sex: Male
  Weight: 11.35 kg

DRUGS (1)
  1. CHILDREN'S ADVIL [Suspect]
     Indication: TEETHING
     Dosage: 3/4 TEASPOON ONCE, ORAL
     Route: 048
     Dates: start: 20041019, end: 20041019

REACTIONS (1)
  - FEBRILE CONVULSION [None]
